FAERS Safety Report 9634116 (Version 3)
Quarter: 2013Q4

REPORT INFORMATION
  Report Type: Spontaneous
  Country: CN (occurrence: None)
  Receive Date: 20131017
  Receipt Date: 20131211
  Transmission Date: 20140711
  Serious: Yes (Hospitalization)
  Sender: FDA-Public Use
  Company Number: SYM-2013-11615

PATIENT
  Age: 72 Year
  Sex: Female

DRUGS (4)
  1. 5 FU (FLUOROURACIL) (SOLUTION FOR INFUSION) (FLUOROURACIL) [Suspect]
     Indication: RECTOSIGMOID CANCER
     Route: 040
     Dates: start: 20130917, end: 20130917
  2. IRINOTECAN (IRINOTECAN) (SOLUTION FOR INFUSION) (IRINOTECAN) [Suspect]
     Indication: RECTOSIGMOID CANCER
     Route: 041
     Dates: start: 20130917, end: 20130917
  3. LEUCOVORIN (FOLINIC ACID) (SOLUTION FOR INFUSION) (FOLINIC ACID) [Suspect]
     Indication: RECTOSIGMOID CANCER
     Dosage: EVERY OTHER WEEK INTRAVENOUS DRIP
     Route: 041
  4. BLINDED THERAPY (OTHER THERAPEUTIC PRODUCTS) (SOLUTION FOR INFUSION) (NULL) [Suspect]
     Indication: RECTOSIGMOID CANCER
     Route: 041
     Dates: start: 20130917, end: 20130917

REACTIONS (4)
  - Hypoalbuminaemia [None]
  - Urinary tract infection [None]
  - Febrile neutropenia [None]
  - Pyuria [None]
